FAERS Safety Report 9735814 (Version 2)
Quarter: 2015Q3

REPORT INFORMATION
  Report Type: Spontaneous
  Country: US (occurrence: US)
  Receive Date: 20131206
  Receipt Date: 20150804
  Transmission Date: 20151125
  Serious: No
  Sender: FDA-Public Use
  Company Number: US-GILEAD-2009-0023744

PATIENT
  Age: 61 Year
  Sex: Female
  Weight: 82.1 kg

DRUGS (9)
  1. LASIX [Concomitant]
     Active Substance: FUROSEMIDE
  2. FERROUS SULFATE [Concomitant]
     Active Substance: FERROUS SULFATE\FERROUS SULFATE, DRIED
  3. LETAIRIS [Suspect]
     Active Substance: AMBRISENTAN
     Indication: PULMONARY ARTERIAL HYPERTENSION
     Route: 048
  4. VITAMIN D+ CALCIUM [Concomitant]
  5. OXYGEN. [Concomitant]
     Active Substance: OXYGEN
  6. VITAMIN C [Concomitant]
     Active Substance: ASCORBIC ACID
  7. POTASSIUM [Concomitant]
     Active Substance: POTASSIUM
  8. REVATIO [Concomitant]
     Active Substance: SILDENAFIL CITRATE
  9. FOLIC ACID. [Concomitant]
     Active Substance: FOLIC ACID

REACTIONS (3)
  - Nausea [Unknown]
  - Blood count abnormal [Unknown]
  - Dyspnoea [Unknown]
